FAERS Safety Report 18046506 (Version 1)
Quarter: 2020Q3

REPORT INFORMATION
  Report Type: Spontaneous
  Country: US (occurrence: US)
  Receive Date: 20200720
  Receipt Date: 20200720
  Transmission Date: 20201103
  Serious: Yes (Congenital Anomaly)
  Sender: FDA-Public Use
  Company Number: US-AVION PHARMACEUTICALS, LLC-2087524

PATIENT
  Age: 24 Month
  Sex: Female

DRUGS (1)
  1. BALCOLTRA [Suspect]
     Active Substance: ETHINYL ESTRADIOL\LEVONORGESTREL
     Indication: CONTRACEPTION
     Route: 067

REACTIONS (3)
  - Virilism [Unknown]
  - Persistent urogenital sinus [Unknown]
  - Vulval disorder [None]
